FAERS Safety Report 7040293-8 (Version None)
Quarter: 2010Q4

REPORT INFORMATION
  Report Type: 
  Country: None (occurrence: None)
  Receive Date: 20101012
  Receipt Date: 20101005
  Transmission Date: 20110411
  Serious: Yes (Other)
  Sender: FDA-Public Use
  Company Number: US-AMGEN-QUU443470

PATIENT
  Sex: Male

DRUGS (4)
  1. NPLATE [Suspect]
     Indication: IDIOPATHIC THROMBOCYTOPENIC PURPURA
     Dates: start: 20100427
  2. CORTICOSTEROIDS [Concomitant]
     Dates: start: 20080711
  3. IMMU-G [Concomitant]
     Route: 042
     Dates: start: 20070604
  4. COUMADIN [Concomitant]

REACTIONS (3)
  - ARTHRITIS BACTERIAL [None]
  - CARDIAC FAILURE CONGESTIVE [None]
  - STAPHYLOCOCCAL INFECTION [None]
